FAERS Safety Report 8078149-4 (Version None)
Quarter: 2012Q1

REPORT INFORMATION
  Report Type: 
  Country: None (occurrence: None)
  Receive Date: 20120127
  Receipt Date: 20110106
  Transmission Date: 20120608
  Serious: No
  Sender: FDA-Public Use
  Company Number: US-ABBOTT-10P-163-0689960-00

PATIENT
  Sex: Female
  Weight: 49.94 kg

DRUGS (3)
  1. HUMIRA [Suspect]
     Indication: ANKYLOSING SPONDYLITIS
     Route: 058
     Dates: start: 20080801
  2. ESTRADIOL [Suspect]
     Indication: OVARIAN FAILURE
     Dosage: UNKNOWN STRENGTH
     Route: 048
     Dates: start: 20090101, end: 20100901
  3. HUMIRA [Suspect]
     Indication: UVEITIS

REACTIONS (5)
  - OVARIAN FAILURE [None]
  - DEVICE MALFUNCTION [None]
  - INJECTION SITE PAIN [None]
  - INJECTION SITE HAEMATOMA [None]
  - BREAST CYST [None]
